FAERS Safety Report 20769513 (Version 3)
Quarter: 2022Q3

REPORT INFORMATION
  Report Type: Report from Study
  Country: JP (occurrence: JP)
  Receive Date: 20220429
  Receipt Date: 20220718
  Transmission Date: 20221027
  Serious: Yes (Death, Other)
  Sender: FDA-Public Use
  Company Number: JP-MSD-2204JPN002715J

PATIENT
  Sex: Male
  Weight: 68 kg

DRUGS (3)
  1. MOLNUPIRAVIR [Suspect]
     Active Substance: MOLNUPIRAVIR
     Indication: COVID-19 treatment
     Dosage: 800 MILLIGRAM/DAY
     Route: 048
     Dates: start: 20220310, end: 20220310
  2. MOLNUPIRAVIR [Suspect]
     Active Substance: MOLNUPIRAVIR
     Dosage: 800 MILLIGRAM, BID
     Route: 048
     Dates: start: 20220311, end: 20220314
  3. MOLNUPIRAVIR [Suspect]
     Active Substance: MOLNUPIRAVIR
     Dosage: 800 MILLIGRAM/DAY
     Route: 048
     Dates: start: 20220315, end: 20220315

REACTIONS (3)
  - Prostate cancer [Fatal]
  - COVID-19 [Fatal]
  - Product use issue [Unknown]

NARRATIVE: CASE EVENT DATE: 20220310
